FAERS Safety Report 15466611 (Version 1)
Quarter: 2018Q4

REPORT INFORMATION
  Report Type: Report from Study
  Country: US (occurrence: US)
  Receive Date: 20181005
  Receipt Date: 20181005
  Transmission Date: 20190204
  Serious: Yes (Hospitalization)
  Sender: FDA-Public Use
  Company Number: US-IPSEN BIOPHARMACEUTICALS, INC.-2018-14182

PATIENT
  Age: 6 Year
  Sex: Female
  Weight: 36.7 kg

DRUGS (2)
  1. DYSPORT [Suspect]
     Active Substance: ABOBOTULINUMTOXINA
     Indication: MUSCLE SPASTICITY
     Dosage: 600 UNITS
     Route: 030
     Dates: start: 20180227, end: 20180227
  2. VALPROATE [Concomitant]
     Active Substance: VALPROIC ACID
     Indication: SEIZURE
     Route: 048
     Dates: start: 20170929

REACTIONS (2)
  - Seizure [Recovered/Resolved]
  - Tenotomy [Recovered/Resolved]

NARRATIVE: CASE EVENT DATE: 20180530
